FAERS Safety Report 22628994 (Version 1)
Quarter: 2023Q2

REPORT INFORMATION
  Report Type: Spontaneous
  Country: US (occurrence: US)
  Receive Date: 20230622
  Receipt Date: 20230622
  Transmission Date: 20230722
  Serious: No
  Sender: FDA-Public Use
  Company Number: US-BAYER-2023A084304

PATIENT
  Age: 18 Year
  Sex: Male

DRUGS (1)
  1. LORATADINE [Suspect]
     Active Substance: LORATADINE
     Indication: Periorbital swelling
     Dosage: UNK

REACTIONS (2)
  - Off label use [None]
  - Drug ineffective for unapproved indication [None]
